FAERS Safety Report 9940138 (Version 1)
Quarter: 2014Q1

REPORT INFORMATION
  Report Type: Spontaneous
  Country: US (occurrence: US)
  Receive Date: 20140303
  Receipt Date: 20140303
  Transmission Date: 20141002
  Serious: No
  Sender: FDA-Public Use
  Company Number: US-ABBVIE-13P-163-1032640-00

PATIENT
  Age: 64 Year
  Sex: Female
  Weight: 51.76 kg

DRUGS (4)
  1. HUMIRA [Suspect]
     Indication: CROHN^S DISEASE
     Dates: start: 201212
  2. MORPHINE [Concomitant]
     Indication: PAIN
  3. ATIVAN [Concomitant]
     Indication: ANXIETY
  4. TIZANIDINE [Concomitant]
     Indication: MUSCLE RELAXANT THERAPY
     Dates: start: 201212

REACTIONS (2)
  - Abdominal pain upper [Recovering/Resolving]
  - Diarrhoea [Not Recovered/Not Resolved]
